FAERS Safety Report 21932339 (Version 1)
Quarter: 2023Q1

REPORT INFORMATION
  Report Type: Spontaneous
  Country: US (occurrence: None)
  Receive Date: 20230131
  Receipt Date: 20230131
  Transmission Date: 20230417
  Serious: Yes (Hospitalization, Disabling, Other)
  Sender: FDA-Public Use
  Company Number: None

PATIENT
  Age: 20 Year
  Sex: Male
  Weight: 76.5 kg

DRUGS (7)
  1. FINASTERIDE [Suspect]
     Active Substance: FINASTERIDE
     Indication: Alopecia
     Dosage: OTHER QUANTITY : 1 CAPSULE(S);?FREQUENCY : DAILY;?
     Route: 048
  2. MINOXIDIL [Suspect]
     Active Substance: MINOXIDIL
     Indication: Alopecia
     Dosage: FREQUENCY : DAILY;?
     Route: 048
  3. FISH OIL [Concomitant]
     Active Substance: FISH OIL
  4. CYANOCOBALAMIN\DEXPANTHENOL\NIACINAMIDE\PYRIDOXINE HYDROCHLORIDE\RIBOF [Concomitant]
     Active Substance: CYANOCOBALAMIN\DEXPANTHENOL\NIACINAMIDE\PYRIDOXINE HYDROCHLORIDE\RIBOFLAVIN 5^-PHOSPHATE SODIUM\THIA
  5. low dose Magnesium [Concomitant]
  6. VITAMINS [Concomitant]
     Active Substance: VITAMINS
  7. BEE POLLEN [Concomitant]
     Active Substance: BEE POLLEN

REACTIONS (8)
  - Psychotic disorder [None]
  - Disturbance in attention [None]
  - Insomnia [None]
  - Suicide attempt [None]
  - Anxiety [None]
  - Thinking abnormal [None]
  - Abnormal behaviour [None]
  - Hallucination [None]

NARRATIVE: CASE EVENT DATE: 20210924
